FAERS Safety Report 7545385-2 (Version None)
Quarter: 2011Q2

REPORT INFORMATION
  Report Type: 
  Country: None (occurrence: None)
  Receive Date: 20110613
  Receipt Date: 20110613
  Transmission Date: 20111010
  Serious: Yes (Other)
  Sender: FDA-Public Use
  Company Number: None

PATIENT
  Age: 52 Year
  Sex: Female
  Weight: 51.7 kg

DRUGS (2)
  1. CEFTRIAXONE [Suspect]
     Indication: PNEUMONIA
     Dosage: 1 GRAM DAILY IV 1 DOSE
     Route: 042
  2. CEFTRIAXONE [Suspect]
     Indication: PROPHYLAXIS
     Dosage: 1 GRAM DAILY IV 1 DOSE
     Route: 042

REACTIONS (1)
  - GENERALISED ERYTHEMA [None]
